FAERS Safety Report 5754699-8 (Version None)
Quarter: 2008Q2

REPORT INFORMATION
  Report Type: 
  Country: None (occurrence: None)
  Receive Date: 20080530
  Receipt Date: 20080519
  Transmission Date: 20081010
  Serious: Yes (Other)
  Sender: FDA-Public Use
  Company Number: US-PFIZER INC-2008044057

PATIENT
  Sex: Male
  Weight: 145.2 kg

DRUGS (1)
  1. CHANTIX [Suspect]
     Indication: SMOKING CESSATION THERAPY
     Dates: start: 20080430, end: 20080515

REACTIONS (3)
  - OEDEMA PERIPHERAL [None]
  - RASH MACULAR [None]
  - URTICARIA [None]
